FAERS Safety Report 9628092 (Version 2)
Quarter: 2013Q4

REPORT INFORMATION
  Report Type: Spontaneous
  Country: US (occurrence: US)
  Receive Date: 20131017
  Receipt Date: 20131113
  Transmission Date: 20140711
  Serious: Yes (Hospitalization, Other)
  Sender: FDA-Public Use
  Company Number: US-AMGEN-USASP2013071747

PATIENT
  Age: 64 Year
  Sex: Female
  Weight: 68.4 kg

DRUGS (2)
  1. NPLATE [Suspect]
     Indication: IMMUNE THROMBOCYTOPENIC PURPURA
     Dosage: 45 MUG, UNK
     Route: 058
     Dates: start: 20130510, end: 20130927
  2. IVIGLOB-EX [Concomitant]
     Indication: IMMUNE THROMBOCYTOPENIC PURPURA
     Dosage: UNK UNK, Q3WK
     Route: 042

REACTIONS (2)
  - Hepatic encephalopathy [Not Recovered/Not Resolved]
  - Liver disorder [Unknown]
